FAERS Safety Report 20192838 (Version 2)
Quarter: 2022Q1

REPORT INFORMATION
  Report Type: Spontaneous
  Country: US (occurrence: US)
  Receive Date: 20211216
  Receipt Date: 20220101
  Transmission Date: 20220424
  Serious: No
  Sender: FDA-Public Use
  Company Number: US-LUPIN PHARMACEUTICALS INC.-2021-24313

PATIENT
  Sex: Female

DRUGS (1)
  1. ALBUTEROL SULFATE [Suspect]
     Active Substance: ALBUTEROL SULFATE
     Indication: Asthma
     Dosage: UNK (2 PO Q 6 H PRN)

REACTIONS (4)
  - Wrong technique in product usage process [Unknown]
  - Device information output issue [Unknown]
  - Intentional product misuse [Unknown]
  - No adverse event [Unknown]
